FAERS Safety Report 8349703-7 (Version None)
Quarter: 2012Q2

REPORT INFORMATION
  Report Type: 
  Country: None (occurrence: None)
  Receive Date: 20120510
  Receipt Date: 20120508
  Transmission Date: 20120825
  Serious: Yes (Other)
  Sender: FDA-Public Use
  Company Number: PHHY2012JP023455

PATIENT
  Age: 44 Year
  Sex: Male
  Weight: 63 kg

DRUGS (8)
  1. ALLOPURINOL [Concomitant]
     Dosage: 50 MG, UNK
     Route: 048
  2. TANATRIL [Concomitant]
     Dosage: 7.5 MG, UNK
     Route: 048
     Dates: start: 20111114
  3. AMLODIPINE [Concomitant]
     Dosage: 10 MG, UNK
     Route: 048
  4. CRESTOR [Concomitant]
     Dosage: 2.5 MG, UNK
     Route: 048
     Dates: start: 20120106
  5. ALFAROL [Concomitant]
     Dosage: 0.25 MG, UNK
     Route: 048
     Dates: start: 20120209
  6. CARVEDILOL [Concomitant]
     Dosage: 10 MG, UNK
     Route: 048
  7. OLMESARTAN MEDOXOMIL [Concomitant]
     Dosage: 40 MG, UNK
     Route: 048
     Dates: start: 20111114
  8. RASILEZ [Suspect]
     Indication: HYPERTENSION
     Dosage: 150 MG, UNK
     Route: 048
     Dates: start: 20120305, end: 20120308

REACTIONS (4)
  - BLOOD CREATININE INCREASED [None]
  - RENAL IMPAIRMENT [None]
  - HYPERKALAEMIA [None]
  - BLOOD UREA INCREASED [None]
